FAERS Safety Report 21861748 (Version 1)
Quarter: 2023Q1

REPORT INFORMATION
  Report Type: Spontaneous
  Country: US (occurrence: None)
  Receive Date: 20230113
  Receipt Date: 20230113
  Transmission Date: 20230417
  Serious: Yes (Hospitalization, Other)
  Sender: FDA-Public Use
  Company Number: None

PATIENT
  Age: 36 Year
  Sex: Male
  Weight: 76.5 kg

DRUGS (7)
  1. RIFAMPIN [Suspect]
     Active Substance: RIFAMPIN
     Indication: Lyme disease
     Dosage: OTHER QUANTITY : 30 CAPSULE(S);?FREQUENCY : TWICE A DAY;?
     Route: 048
     Dates: start: 20230103, end: 20230103
  2. RIFAMPIN [Suspect]
     Active Substance: RIFAMPIN
     Indication: Cat scratch disease
  3. RIFAMPIN [Suspect]
     Active Substance: RIFAMPIN
  4. Azythromiacin [Concomitant]
  5. CEFDINIR [Concomitant]
     Active Substance: CEFDINIR
  6. BIOCIDIN [Concomitant]
  7. Ultra flora Spectrum [Concomitant]

REACTIONS (6)
  - Sneezing [None]
  - Eye pruritus [None]
  - Lacrimation increased [None]
  - Periorbital swelling [None]
  - Wheezing [None]
  - Visual impairment [None]

NARRATIVE: CASE EVENT DATE: 20230103
